FAERS Safety Report 10271284 (Version 3)
Quarter: 2014Q4

REPORT INFORMATION
  Report Type: Spontaneous
  Country: US (occurrence: US)
  Receive Date: 20140701
  Receipt Date: 20141105
  Transmission Date: 20150528
  Serious: Yes (Other)
  Sender: FDA-Public Use
  Company Number: US-GILEAD-2014-0107197

PATIENT
  Age: 58 Year
  Sex: Female

DRUGS (2)
  1. TYVASO [Concomitant]
     Active Substance: TREPROSTINIL
  2. LETAIRIS [Suspect]
     Active Substance: AMBRISENTAN
     Indication: PULMONARY ARTERIAL HYPERTENSION
     Dosage: 5 MG, QD
     Route: 065
     Dates: start: 20120418

REACTIONS (3)
  - Bronchitis [Unknown]
  - Pneumonia [Unknown]
  - Anaemia [Unknown]

NARRATIVE: CASE EVENT DATE: 201406
